FAERS Safety Report 26199815 (Version 1)
Quarter: 2025Q4

REPORT INFORMATION
  Report Type: Spontaneous
  Country: US (occurrence: US)
  Receive Date: 20251225
  Receipt Date: 20251225
  Transmission Date: 20260118
  Serious: Yes (Death, Other)
  Sender: AMGEN
  Company Number: US-AMGEN-USASP2025251869

PATIENT

DRUGS (3)
  1. FILGRASTIM [Suspect]
     Active Substance: FILGRASTIM
     Indication: Haematopoietic stem cell mobilisation
     Dosage: UNK
     Route: 065
  2. PREDNISONE [Suspect]
     Active Substance: PREDNISONE
     Indication: Prophylaxis
     Dosage: UNK
     Route: 065
  3. PREDNISONE [Suspect]
     Active Substance: PREDNISONE
     Indication: Off label use

REACTIONS (6)
  - Death [Fatal]
  - Epstein-Barr virus infection reactivation [Unknown]
  - Encephalitis cytomegalovirus [Unknown]
  - Cytomegalovirus infection reactivation [Unknown]
  - Natural killer cell count decreased [Unknown]
  - Off label use [Unknown]
